FAERS Safety Report 16197697 (Version 1)
Quarter: 2019Q2

REPORT INFORMATION
  Report Type: Spontaneous
  Country: US (occurrence: US)
  Receive Date: 20190414
  Receipt Date: 20190414
  Transmission Date: 20190711
  Serious: Yes (Other)
  Sender: FDA-Public Use
  Company Number: None

PATIENT
  Age: 53 Year
  Sex: Female
  Weight: 103.5 kg

DRUGS (2)
  1. CANDESA/HCTZ [Concomitant]
  2. MITCHUM CLEAR GEL [Suspect]
     Active Substance: ALUMINUM SESQUICHLOROHYDRATE
     Indication: HYPERHIDROSIS
     Dosage: ?          QUANTITY:3.4 OUNCE(S);?
     Route: 061

REACTIONS (2)
  - Scar [None]
  - Administration site pain [None]

NARRATIVE: CASE EVENT DATE: 20190210
